FAERS Safety Report 19678668 (Version 3)
Quarter: 2022Q1

REPORT INFORMATION
  Report Type: Spontaneous
  Country: US (occurrence: US)
  Receive Date: 20210809
  Receipt Date: 20220125
  Transmission Date: 20220423
  Serious: Yes (Other)
  Sender: FDA-Public Use
  Company Number: US-PFIZER INC-2021703151

PATIENT
  Age: 76 Year
  Sex: Female

DRUGS (1)
  1. IBRANCE [Suspect]
     Active Substance: PALBOCICLIB
     Indication: Breast cancer female
     Dosage: 125 MG
     Dates: start: 20210223

REACTIONS (12)
  - Neutropenia [Unknown]
  - Leukopenia [Unknown]
  - Ulcer [Unknown]
  - Platelet count decreased [Unknown]
  - Anaemia [Unknown]
  - Dry skin [Unknown]
  - Nerve injury [Unknown]
  - Alopecia [Unknown]
  - Hypoaesthesia [Unknown]
  - Paraesthesia [Unknown]
  - Pain in extremity [Unknown]
  - Burning sensation [Unknown]
